FAERS Safety Report 21909359 (Version 1)
Quarter: 2023Q1

REPORT INFORMATION
  Report Type: Spontaneous
  Country: AT (occurrence: AT)
  Receive Date: 20230125
  Receipt Date: 20230125
  Transmission Date: 20230418
  Serious: Yes (Other)
  Sender: FDA-Public Use
  Company Number: None

PATIENT
  Age: 62 Year
  Sex: Male

DRUGS (1)
  1. PIPERACILLIN SODIUM\TAZOBACTAM SODIUM [Suspect]
     Active Substance: PIPERACILLIN SODIUM\TAZOBACTAM SODIUM
     Indication: Infection
     Dosage: ACCORDING TO SMPC
     Dates: start: 20220825, end: 20220825

REACTIONS (2)
  - Drug eruption [None]
  - Type IV hypersensitivity reaction [None]

NARRATIVE: CASE EVENT DATE: 20220825
